FAERS Safety Report 5200357-8 (Version None)
Quarter: 2007Q1

REPORT INFORMATION
  Report Type: 
  Country: None (occurrence: None)
  Receive Date: 20070105
  Receipt Date: 20061226
  Transmission Date: 20070707
  Serious: Yes (Hospitalization)
  Sender: FDA-Public Use
  Company Number: JP-PFIZER INC-2006154450

PATIENT
  Sex: Female
  Weight: 37 kg

DRUGS (4)
  1. CYTOTEC [Suspect]
     Indication: GASTRIC ULCER HAEMORRHAGE
     Route: 048
     Dates: start: 20061130, end: 20061207
  2. ADALAT [Concomitant]
     Route: 048
     Dates: start: 20061206, end: 20061210
  3. PARIET [Concomitant]
     Indication: GASTRIC ULCER HAEMORRHAGE
     Route: 048
     Dates: start: 20061130, end: 20061207
  4. BLOOD, WHOLE [Concomitant]
     Route: 042

REACTIONS (5)
  - GRAFT VERSUS HOST DISEASE [None]
  - PYREXIA [None]
  - RASH [None]
  - STEVENS-JOHNSON SYNDROME [None]
  - TRANSFUSION REACTION [None]
